FAERS Safety Report 7299246-7 (Version None)
Quarter: 2011Q1

REPORT INFORMATION
  Report Type: 
  Country: None (occurrence: None)
  Receive Date: 20110217
  Receipt Date: 20110211
  Transmission Date: 20110831
  Serious: Yes (Disabling)
  Sender: FDA-Public Use
  Company Number: CA-MERCK-1102USA01605

PATIENT
  Age: 73 Year
  Sex: Female
  Weight: 47 kg

DRUGS (4)
  1. CALCIUM (UNSPECIFIED) [Concomitant]
     Route: 048
  2. FOSAMAX [Suspect]
     Route: 048
  3. VITAMIN A [Concomitant]
     Route: 065
  4. FOSAMAX [Suspect]
     Route: 048

REACTIONS (3)
  - SPINAL FRACTURE [None]
  - CONDITION AGGRAVATED [None]
  - OSTEOPOROSIS [None]
